FAERS Safety Report 20988163 (Version 1)
Quarter: 2022Q2

REPORT INFORMATION
  Report Type: Spontaneous
  Country: GB (occurrence: GB)
  Receive Date: 20220621
  Receipt Date: 20220621
  Transmission Date: 20220721
  Serious: Yes (Other)
  Sender: FDA-Public Use
  Company Number: GB-BAYER-2022A082982

PATIENT
  Sex: Female

DRUGS (1)
  1. MIRENA [Suspect]
     Active Substance: LEVONORGESTREL
     Dosage: 20?G/DAY
     Route: 015
     Dates: end: 2022

REACTIONS (8)
  - Hypersensitivity [Recovered/Resolved]
  - Urinary tract infection [Recovered/Resolved]
  - Chills [Recovered/Resolved]
  - Pelvic pain [Recovered/Resolved]
  - Groin pain [Recovered/Resolved]
  - Vulvovaginal pain [Recovered/Resolved]
  - Pelvic floor dysfunction [Recovered/Resolved]
  - Back pain [Recovered/Resolved]

NARRATIVE: CASE EVENT DATE: 20220401
